FAERS Safety Report 4605994-7 (Version None)
Quarter: 2005Q1

REPORT INFORMATION
  Report Type: 
  Country: None (occurrence: None)
  Receive Date: 20050311
  Receipt Date: 20050225
  Transmission Date: 20050727
  Serious: Yes (Other)
  Sender: FDA-Public Use
  Company Number: US-GLAXOSMITHKLINE-A0547294A

PATIENT
  Age: 70 Year
  Sex: Male
  Weight: 75 kg

DRUGS (2)
  1. NATURE'S REMEDY TABLETS [Suspect]
     Indication: CONSTIPATION
     Route: 048
  2. NATURE'S REMEDY TABLETS [Suspect]
     Route: 048
     Dates: start: 20050101

REACTIONS (1)
  - DEMENTIA ALZHEIMER'S TYPE [None]
